FAERS Safety Report 8438612-0 (Version None)
Quarter: 2012Q2

REPORT INFORMATION
  Report Type: 
  Country: None (occurrence: None)
  Receive Date: 20120615
  Receipt Date: 20120612
  Transmission Date: 20120825
  Serious: No
  Sender: FDA-Public Use
  Company Number: US-PFIZER INC-2012116197

PATIENT
  Sex: Male
  Weight: 58.503 kg

DRUGS (7)
  1. ELIGARD [Concomitant]
     Indication: PROSTATE CANCER
     Dosage: 22.5 MG, EVERY 3 MONTHS
  2. CHANTIX [Suspect]
     Indication: SMOKING CESSATION THERAPY
     Dosage: 0.5 MG, 1X/DAY
     Route: 048
     Dates: start: 20120424
  3. CHANTIX [Suspect]
     Dosage: UNK
     Route: 048
     Dates: end: 20120513
  4. BICALUTAMIDE [Suspect]
     Indication: FEELING HOT
     Dosage: 50 MG DAILY
     Route: 048
  5. PAROXETINE [Concomitant]
     Indication: DEPRESSION
     Dosage: UNK
  6. METFORMIN HCL [Suspect]
     Indication: DIABETES MELLITUS
     Dosage: 500 MG, 2X/DAY
  7. SIMVASTATIN [Concomitant]
     Indication: BLOOD CHOLESTEROL INCREASED
     Dosage: UNK

REACTIONS (2)
  - CONSTIPATION [None]
  - SLEEP DISORDER [None]
